FAERS Safety Report 4879784-4 (Version None)
Quarter: 2006Q1

REPORT INFORMATION
  Report Type: 
  Country: None (occurrence: None)
  Receive Date: 20060113
  Receipt Date: 20060106
  Transmission Date: 20060701
  Serious: Yes (Hospitalization)
  Sender: FDA-Public Use
  Company Number: 2005AP000957

PATIENT
  Sex: Female

DRUGS (2)
  1. PAROXETINE HYDROCHLORIDE [Suspect]
     Dosage: 30MG PER DAY
  2. CHLORPROMAZINE [Suspect]
     Dosage: 50MG PER DAY

REACTIONS (14)
  - CONVULSION [None]
  - DRUG EXPOSURE DURING PREGNANCY [None]
  - DRUG WITHDRAWAL SYNDROME NEONATAL [None]
  - FEELING JITTERY [None]
  - HYPERREFLEXIA [None]
  - HYPERTONIA NEONATAL [None]
  - NEONATAL RESPIRATORY DISTRESS SYNDROME [None]
  - OPISTHOTONUS [None]
  - POLYCYTHAEMIA [None]
  - PSYCHOMOTOR HYPERACTIVITY [None]
  - PYREXIA [None]
  - SEROTONIN SYNDROME [None]
  - TONIC CLONIC MOVEMENTS [None]
  - TREMOR [None]
